FAERS Safety Report 8560397-8 (Version None)
Quarter: 2012Q3

REPORT INFORMATION
  Report Type: 
  Country: None (occurrence: None)
  Receive Date: 20120802
  Receipt Date: 20120727
  Transmission Date: 20120928
  Serious: Yes (Other)
  Sender: FDA-Public Use
  Company Number: US-ROCHE-783671

PATIENT
  Sex: Female
  Weight: 63.56 kg

DRUGS (10)
  1. BIAXIN (UNITED STATES) [Concomitant]
  2. TETRACYCLIN [Concomitant]
  3. TEQUIN [Concomitant]
  4. DICYCLOMINE [Concomitant]
     Indication: IRRITABLE BOWEL SYNDROME
  5. ACCUTANE [Suspect]
     Indication: ACNE
     Route: 065
     Dates: start: 20000501, end: 20020101
  6. GUAIFENESIN [Concomitant]
  7. AKNE-MYCIN (UNITED STATES) [Concomitant]
  8. ORTHO TRI-CYCLEN [Concomitant]
  9. DOXYCYCLINE [Concomitant]
  10. YASMIN [Concomitant]
     Indication: CONTRACEPTION

REACTIONS (6)
  - IRRITABLE BOWEL SYNDROME [None]
  - INFLAMMATORY BOWEL DISEASE [None]
  - DRY SKIN [None]
  - COLITIS ULCERATIVE [None]
  - EMOTIONAL DISTRESS [None]
  - DRY EYE [None]
